FAERS Safety Report 9288140 (Version 1)
Quarter: 2013Q2

REPORT INFORMATION
  Report Type: Spontaneous
  Country: US (occurrence: None)
  Receive Date: 20130513
  Receipt Date: 20130513
  Transmission Date: 20140414
  Serious: No
  Sender: FDA-Public Use
  Company Number: None

PATIENT
  Age: 35 Year
  Sex: Male
  Weight: 94.35 kg

DRUGS (1)
  1. OSMOPREP [Suspect]
     Indication: COLONOSCOPY

REACTIONS (2)
  - Vomiting [None]
  - Dehydration [None]
